FAERS Safety Report 10347769 (Version 1)
Quarter: 2014Q3

REPORT INFORMATION
  Report Type: Spontaneous
  Country: US (occurrence: US)
  Receive Date: 20140729
  Receipt Date: 20140729
  Transmission Date: 20150326
  Serious: Yes (Other)
  Sender: FDA-Public Use
  Company Number: US-ACTAVIS-2014-16136

PATIENT
  Age: 62 Year
  Sex: Female
  Weight: 66 kg

DRUGS (3)
  1. SYNTHROID [Concomitant]
     Active Substance: LEVOTHYROXINE SODIUM
     Indication: HYPOTHYROIDISM
     Dosage: 75 MG, DAILY
     Route: 048
  2. LORAZEPAM (WATSON LABORATORIES) [Suspect]
     Active Substance: LORAZEPAM
     Indication: ANXIETY
     Dosage: 2 MG, TID
     Route: 048
     Dates: start: 201404
  3. ASPIRIN. [Concomitant]
     Active Substance: ASPIRIN
     Indication: ANTICOAGULANT THERAPY
     Dosage: 81 MG, DAILY
     Route: 048

REACTIONS (10)
  - Drug ineffective [Not Recovered/Not Resolved]
  - Nervousness [Not Recovered/Not Resolved]
  - Decreased appetite [Not Recovered/Not Resolved]
  - Feeling jittery [Not Recovered/Not Resolved]
  - Insomnia [Not Recovered/Not Resolved]
  - Drug withdrawal syndrome [Not Recovered/Not Resolved]
  - Disability [Not Recovered/Not Resolved]
  - Disturbance in attention [Not Recovered/Not Resolved]
  - Quality of life decreased [Not Recovered/Not Resolved]
  - Weight decreased [Not Recovered/Not Resolved]

NARRATIVE: CASE EVENT DATE: 201404
